FAERS Safety Report 19801149 (Version 1)
Quarter: 2021Q3

REPORT INFORMATION
  Report Type: Other
  Country: US (occurrence: US)
  Receive Date: 20210907
  Receipt Date: 20210907
  Transmission Date: 20211014
  Serious: No
  Sender: FDA-Public Use
  Company Number: US-FAGRON STERILE SERVICES-2118086

PATIENT

DRUGS (1)
  1. TRIAMCINOLONE ACETONIDE 40MG/ML INJ SUSP. PF 1ML SDV [Suspect]
     Active Substance: TRIAMCINOLONE ACETONIDE

REACTIONS (1)
  - Eye infection [None]
